FAERS Safety Report 17514993 (Version 1)
Quarter: 2020Q1

REPORT INFORMATION
  Report Type: Spontaneous
  Country: GB (occurrence: GB)
  Receive Date: 20200309
  Receipt Date: 20200309
  Transmission Date: 20200409
  Serious: Yes (Disabling)
  Sender: FDA-Public Use
  Company Number: GB-SA-2020SA055593

PATIENT
  Age: 70 Year
  Sex: Male
  Weight: 75 kg

DRUGS (2)
  1. CANDESARTAN. [Suspect]
     Active Substance: CANDESARTAN
     Indication: ESSENTIAL HYPERTENSION
     Dosage: UNK, ORIGINALLY 8 MG TWICE DAILY BUT REDUCED TO 4 MG TWICE DAILY WEF DEC 2019
     Route: 048
     Dates: start: 2016, end: 20200114
  2. IRBESARTAN. [Suspect]
     Active Substance: IRBESARTAN
     Dosage: UNK
     Route: 065
     Dates: start: 201909

REACTIONS (5)
  - Mobility decreased [Recovering/Resolving]
  - Back pain [Recovering/Resolving]
  - Adverse drug reaction [Unknown]
  - Amputation stump pain [Recovering/Resolving]
  - Musculoskeletal pain [Recovering/Resolving]

NARRATIVE: CASE EVENT DATE: 2016
